FAERS Safety Report 19722585 (Version 1)
Quarter: 2021Q3

REPORT INFORMATION
  Report Type: Spontaneous
  Country: US (occurrence: US)
  Receive Date: 20210819
  Receipt Date: 20210819
  Transmission Date: 20211014
  Serious: No
  Sender: FDA-Public Use
  Company Number: US-FRESENIUS MEDICAL CARE RENAL THERAPIES GROUP-FMC-2107-001124

PATIENT
  Sex: Male

DRUGS (1)
  1. DELFLEX [Suspect]
     Active Substance: CALCIUM CHLORIDE\DEXTROSE\MAGNESIUM CHLORIDE\SODIUM CHLORIDE\SODIUM LACTATE
     Indication: END STAGE RENAL DISEASE
     Dosage: FILLS = 6; FILL VOLUME = 2200 ML; LAST FILL VOLUME = 0ML; TOTAL VOLUME = 13200 ML; TOTAL SLEEP TIME
     Route: 033

REACTIONS (2)
  - Dyspnoea [Unknown]
  - Abdominal distension [Unknown]
